FAERS Safety Report 9836501 (Version 3)
Quarter: 2014Q1

REPORT INFORMATION
  Report Type: Report from Study
  Country: DE (occurrence: DE)
  Receive Date: 20140123
  Receipt Date: 20140206
  Transmission Date: 20141002
  Serious: Yes (Death)
  Sender: FDA-Public Use
  Company Number: DE-BEH-2014040251

PATIENT
  Age: 77 Year
  Sex: Female
  Weight: 69 kg

DRUGS (10)
  1. PRIVIGEN [Suspect]
     Indication: INFECTION
     Dosage: INFUSION RATE MIN/MAX. 34.5/414
     Route: 042
     Dates: start: 20130813, end: 20130813
  2. PRIVIGEN [Suspect]
     Indication: SECONDARY IMMUNODEFICIENCY
     Dosage: INFUSION RATE MIN/MAX. 34.5/414
     Route: 042
     Dates: start: 20130909, end: 20130909
  3. PRIVIGEN [Suspect]
     Dosage: INFUSION RATE MIN/MAX. 34.5/420
     Route: 042
     Dates: start: 20131007, end: 20131007
  4. PRIVIGEN [Suspect]
     Indication: CHRONIC LYMPHOCYTIC LEUKAEMIA
     Dosage: INFUSION RATE MIN/MAX. 34.5/420
     Route: 042
     Dates: start: 20131107, end: 20131107
  5. PROTON PUMP INHIBITOR [Concomitant]
  6. CYTOSTATIC [Concomitant]
  7. ANTIEMETIC [Concomitant]
  8. TRANQUILIZER [Concomitant]
  9. DIURETICS [Concomitant]
  10. ANTIHYPERTENSIVES [Concomitant]

REACTIONS (1)
  - Chronic lymphocytic leukaemia [Fatal]
